FAERS Safety Report 5625138-2 (Version None)
Quarter: 2008Q1

REPORT INFORMATION
  Report Type: 
  Country: None (occurrence: None)
  Receive Date: 20080213
  Receipt Date: 20080118
  Transmission Date: 20080703
  Serious: No
  Sender: FDA-Public Use
  Company Number: US-BOEHRINGER INGELHEIM GMBH, GERMANY-2007-BP-26378BP

PATIENT
  Age: 62 Year
  Sex: Male

DRUGS (2)
  1. MICARDIS [Suspect]
     Indication: HYPERTENSION
     Route: 048
     Dates: start: 20060401
  2. ALLOPURINOL [Concomitant]
     Indication: GOUT

REACTIONS (2)
  - BLOOD PRESSURE INCREASED [None]
  - DRUG EFFECT DECREASED [None]
